FAERS Safety Report 14264675 (Version 1)
Quarter: 2017Q4

REPORT INFORMATION
  Report Type: Spontaneous
  Country: US (occurrence: US)
  Receive Date: 20171208
  Receipt Date: 20171208
  Transmission Date: 20180321
  Serious: No
  Sender: FDA-Public Use
  Company Number: US-VIFOR (INTERNATIONAL) INC.-VIT-2017-09125

PATIENT
  Age: 60 Year
  Sex: Female

DRUGS (17)
  1. VELTASSA [Suspect]
     Active Substance: PATIROMER
     Indication: END STAGE RENAL DISEASE
     Route: 048
     Dates: start: 20170801, end: 20170826
  2. FLEXERIL [Concomitant]
     Active Substance: CYCLOBENZAPRINE HYDROCHLORIDE
  3. METOPROLOL. [Concomitant]
     Active Substance: METOPROLOL
  4. LIPITOR [Concomitant]
     Active Substance: ATORVASTATIN CALCIUM
  5. LEVEMIR [Concomitant]
     Active Substance: INSULIN DETEMIR
  6. NOVOLOG [Concomitant]
     Active Substance: INSULIN ASPART
  7. SODIUM BICARBONATE. [Concomitant]
     Active Substance: SODIUM BICARBONATE
  8. IMODIUM [Concomitant]
     Active Substance: LOPERAMIDE HYDROCHLORIDE
  9. LISINOPRIL. [Concomitant]
     Active Substance: LISINOPRIL
  10. SPS [Concomitant]
     Active Substance: SODIUM POLYSTYRENE SULFONATE
  11. TYLENOL [Concomitant]
     Active Substance: ACETAMINOPHEN
  12. NORVASC [Concomitant]
     Active Substance: AMLODIPINE BESYLATE
  13. HYDRALAZINE [Concomitant]
     Active Substance: HYDRALAZINE HYDROCHLORIDE
  14. CYANOCOBALAMIN. [Concomitant]
     Active Substance: CYANOCOBALAMIN
  15. PYRIDOXINE HYDROCHLORIDE. [Concomitant]
     Active Substance: PYRIDOXINE HYDROCHLORIDE
  16. ALLERGY RELIEF [Concomitant]
  17. FOLIC ACID. [Concomitant]
     Active Substance: FOLIC ACID

REACTIONS (6)
  - Treatment noncompliance [Unknown]
  - Product use complaint [Unknown]
  - Product solubility abnormal [Unknown]
  - Product use in unapproved indication [Unknown]
  - Retching [Not Recovered/Not Resolved]
  - Product physical issue [Unknown]

NARRATIVE: CASE EVENT DATE: 201708
